FAERS Safety Report 5159215-X (Version None)
Quarter: 2006Q4

REPORT INFORMATION
  Report Type: 
  Country: None (occurrence: None)
  Receive Date: 20061128
  Receipt Date: 20060913
  Transmission Date: 20070319
  Serious: Yes (Death, Other)
  Sender: FDA-Public Use
  Company Number: JP-MERCK-0609USA02962

PATIENT
  Age: 77 Year
  Sex: Male

DRUGS (38)
  1. PEPCID [Suspect]
     Indication: PROPHYLAXIS AGAINST GASTROINTESTINAL ULCER
     Route: 041
     Dates: start: 20060906, end: 20060907
  2. PEPCID [Suspect]
     Route: 041
     Dates: start: 20060908, end: 20060908
  3. PITRESSIN [Suspect]
     Indication: SHOCK
     Route: 041
     Dates: start: 20060905, end: 20060910
  4. PIPERACILLIN AND TAZOBACTAM [Suspect]
     Indication: PNEUMONIA ASPIRATION
     Route: 041
     Dates: start: 20060905, end: 20060907
  5. DORMICUM (MIDAZOLAM) [Suspect]
     Indication: SEDATION
     Route: 041
     Dates: start: 20060905, end: 20060906
  6. MAGNESIUM CITRATE [Suspect]
     Indication: PREMEDICATION
     Route: 048
     Dates: start: 20060905, end: 20060905
  7. PENTAGIN [Concomitant]
     Indication: ANALGESIC EFFECT
     Route: 041
     Dates: start: 20060905, end: 20060905
  8. LACTEC [Concomitant]
     Indication: DEHYDRATION
     Route: 041
     Dates: start: 20060905, end: 20060905
  9. VEEN F [Concomitant]
     Indication: DEHYDRATION
     Route: 041
     Dates: start: 20060905, end: 20060906
  10. MIRACLID [Concomitant]
     Indication: SHOCK
     Route: 041
     Dates: start: 20060905, end: 20060905
  11. SOLU-CORTEF [Concomitant]
     Indication: SHOCK
     Route: 041
     Dates: start: 20060905, end: 20060905
  12. BUMINATE [Concomitant]
     Indication: SHOCK
     Route: 041
     Dates: start: 20060905, end: 20060907
  13. SODIUM BICARBONATE [Concomitant]
     Indication: ACIDOSIS
     Route: 041
     Dates: start: 20060905, end: 20060908
  14. PREDOPA [Concomitant]
     Indication: SHOCK
     Route: 041
     Dates: start: 20060905, end: 20060906
  15. DOBUTREX [Concomitant]
     Indication: SHOCK
     Route: 041
     Dates: start: 20060905, end: 20060907
  16. NOREPINEPHRINE HYDROCHLORIDE [Concomitant]
     Indication: SHOCK
     Route: 041
     Dates: start: 20060905, end: 20060909
  17. BOSMIN [Concomitant]
     Indication: SHOCK
     Route: 041
     Dates: start: 20060906, end: 20060908
  18. ATROPINE SULFATE [Concomitant]
     Indication: ARRHYTHMIA
     Route: 041
     Dates: start: 20060905, end: 20060907
  19. CALCIUM CHLORIDE [Concomitant]
     Indication: ARRHYTHMIA
     Route: 041
     Dates: start: 20060905, end: 20060905
  20. SALINHES [Concomitant]
     Indication: SHOCK
     Route: 041
     Dates: start: 20060905, end: 20060916
  21. POTASSIUM CHLORIDE [Concomitant]
     Indication: ARRHYTHMIA
     Route: 041
     Dates: start: 20060905, end: 20060906
  22. MAGNESIUM SULFATE [Concomitant]
     Indication: ARRHYTHMIA
     Route: 041
     Dates: start: 20060905, end: 20060905
  23. HUMULIN 70/30 [Concomitant]
     Indication: HYPERGLYCAEMIA
     Route: 041
     Dates: start: 20060905, end: 20060917
  24. ELASPOL [Concomitant]
     Indication: INFLAMMATION
     Route: 041
     Dates: start: 20060905, end: 20060910
  25. IMMUNE GLOBULIN INTRAVENOUS (HUMAN) [Concomitant]
     Indication: INFLAMMATION
     Route: 041
     Dates: start: 20060905, end: 20060909
  26. HYDROCORTONE [Concomitant]
     Indication: INFLAMMATION
     Route: 041
     Dates: start: 20060905, end: 20060909
  27. SOLU-MEDROL [Concomitant]
     Indication: SHOCK
     Route: 041
     Dates: start: 20060906, end: 20060906
  28. LEPETAN [Concomitant]
     Indication: SEDATION
     Route: 041
     Dates: start: 20060906, end: 20060906
  29. NEUART [Concomitant]
     Route: 041
     Dates: start: 20060906, end: 20060910
  30. CALCIUM GLUCONATE [Concomitant]
     Indication: HYPERMAGNESAEMIA
     Route: 041
     Dates: start: 20060906, end: 20060907
  31. LASIX [Concomitant]
     Indication: URINE OUTPUT DECREASED
     Route: 041
     Dates: start: 20060905, end: 20060905
  32. PRIMAXIN [Concomitant]
     Route: 042
     Dates: start: 20060908, end: 20060914
  33. [THERAPY UNSPECIFIED] [Concomitant]
     Route: 041
     Dates: start: 20060905, end: 20060905
  34. [THERAPY UNSPECIFIED] [Concomitant]
     Route: 041
     Dates: start: 20060906, end: 20060910
  35. SOLITA T-1 [Concomitant]
     Route: 041
     Dates: start: 20060906, end: 20060907
  36. DEXTROSE [Concomitant]
     Route: 065
     Dates: start: 20060908, end: 20060908
  37. KALIMATE [Concomitant]
     Route: 048
     Dates: start: 20060907, end: 20060908
  38. LANSOPRAZOLE [Concomitant]
     Route: 048
     Dates: start: 20060907, end: 20060918

REACTIONS (9)
  - ACUTE RESPIRATORY DISTRESS SYNDROME [None]
  - ADRENAL CORTEX NECROSIS [None]
  - MULTI-ORGAN FAILURE [None]
  - PANCREATIC NECROSIS [None]
  - PNEUMONIA [None]
  - RHABDOMYOLYSIS [None]
  - SEPTIC SHOCK [None]
  - STAPHYLOCOCCAL INFECTION [None]
  - TOXIC EPIDERMAL NECROLYSIS [None]
